FAERS Safety Report 13391587 (Version 1)
Quarter: 2017Q1

REPORT INFORMATION
  Report Type: Spontaneous
  Country: US (occurrence: US)
  Receive Date: 20170331
  Receipt Date: 20170331
  Transmission Date: 20170429
  Serious: No
  Sender: FDA-Public Use
  Company Number: US-MYLANLABS-2016M1010190

PATIENT
  Age: 40 Year
  Sex: Female

DRUGS (1)
  1. FENTANYL TRANSDERMAL SYSTEM [Suspect]
     Active Substance: FENTANYL
     Indication: PAIN
     Dosage: 12.5 ?G, QH, CHANGE Q72H
     Route: 062
     Dates: start: 201602

REACTIONS (4)
  - Sedation [Recovered/Resolved]
  - Somnolence [Recovered/Resolved]
  - Device use error [Recovered/Resolved]
  - Drug effect increased [Recovered/Resolved]

NARRATIVE: CASE EVENT DATE: 201602
